FAERS Safety Report 23393749 (Version 1)
Quarter: 2024Q1

REPORT INFORMATION
  Report Type: Spontaneous
  Country: US (occurrence: US)
  Receive Date: 20240111
  Receipt Date: 20240111
  Transmission Date: 20240410
  Serious: No
  Sender: FDA-Public Use
  Company Number: US-REGENERON PHARMACEUTICALS, INC.-2023-134976

PATIENT
  Sex: Female

DRUGS (3)
  1. EYLEA [Suspect]
     Active Substance: AFLIBERCEPT
     Indication: Eye swelling
     Dosage: UNK; INTO RIGHT EYE, FORMULATION: UNKNOWN
     Route: 031
     Dates: start: 20230815, end: 20230815
  2. EYLEA [Suspect]
     Active Substance: AFLIBERCEPT
     Dosage: UNK; INTO RIGHT EYE, FORMULATION: UNKNOWN
     Route: 031
     Dates: start: 20230912, end: 20230912
  3. EYLEA [Suspect]
     Active Substance: AFLIBERCEPT
     Dosage: UNK; INTO RIGHT EYE, FORMULATION: UNKNOWN
     Route: 031
     Dates: start: 20231017, end: 20231017

REACTIONS (1)
  - Visual impairment [Not Recovered/Not Resolved]

NARRATIVE: CASE EVENT DATE: 20230101
